FAERS Safety Report 8053967-7 (Version None)
Quarter: 2012Q1

REPORT INFORMATION
  Report Type: 
  Country: None (occurrence: None)
  Receive Date: 20120118
  Receipt Date: 20120109
  Transmission Date: 20120608
  Serious: Yes (Hospitalization)
  Sender: FDA-Public Use
  Company Number: US-B.I. PHARMACEUTICALS,INC./RIDGEFIELD-2012-BP-00468BP

PATIENT
  Age: 78 Year
  Sex: Female

DRUGS (6)
  1. METFORMIN HCL [Concomitant]
  2. ASPIRIN [Concomitant]
     Dosage: 325 MG
  3. TRADJENTA [Suspect]
     Indication: BLOOD GLUCOSE ABNORMAL
  4. AMARYL [Concomitant]
     Dosage: 10 MG
  5. CRUSHTOR [Concomitant]
     Dosage: 10 MG
  6. RANITIDINE [Suspect]

REACTIONS (1)
  - CEREBROVASCULAR ACCIDENT [None]
